FAERS Safety Report 5794839-8 (Version None)
Quarter: 2008Q2

REPORT INFORMATION
  Report Type: 
  Country: None (occurrence: None)
  Receive Date: 20080630
  Receipt Date: 20080626
  Transmission Date: 20081010
  Serious: Yes (Hospitalization)
  Sender: FDA-Public Use
  Company Number: B0527026A

PATIENT
  Age: 34 Year
  Sex: Male

DRUGS (5)
  1. AUGMENTIN '125' [Suspect]
     Indication: RENAL COLIC
     Route: 048
     Dates: start: 20071128, end: 20071128
  2. VALIUM [Suspect]
     Indication: RENAL COLIC
     Dosage: 10MG SINGLE DOSE
     Route: 030
     Dates: start: 20071128, end: 20071128
  3. NOLOTIL [Suspect]
     Indication: RENAL COLIC
     Dosage: 2G SINGLE DOSE
     Route: 030
     Dates: start: 20071128, end: 20071128
  4. FEXOFENADINE HCL [Suspect]
     Indication: RENAL COLIC
     Dosage: 120MG SINGLE DOSE
     Route: 048
     Dates: start: 20071128, end: 20071128
  5. LEVOTHROID [Concomitant]
     Indication: HYPOTHYROIDISM
     Dosage: 200MG PER DAY
     Route: 048
     Dates: start: 20070901

REACTIONS (3)
  - CHOLURIA [None]
  - HEPATITIS ACUTE [None]
  - JAUNDICE [None]
